FAERS Safety Report 5325688-2 (Version None)
Quarter: 2007Q2

REPORT INFORMATION
  Report Type: 
  Country: None (occurrence: None)
  Receive Date: 20070515
  Receipt Date: 20070503
  Transmission Date: 20071010
  Serious: Yes (Other)
  Sender: FDA-Public Use
  Company Number: US-PFIZER INC-2007037017

PATIENT

DRUGS (1)
  1. LYRICA [Suspect]

REACTIONS (2)
  - BLOOD SODIUM DECREASED [None]
  - INAPPROPRIATE ANTIDIURETIC HORMONE SECRETION [None]
